FAERS Safety Report 12951501 (Version 1)
Quarter: 2016Q4

REPORT INFORMATION
  Report Type: Spontaneous
  Country: US (occurrence: US)
  Receive Date: 20161117
  Receipt Date: 20161117
  Transmission Date: 20170207
  Serious: Yes (Other)
  Sender: FDA-Public Use
  Company Number: US-BAYER-2016-216339

PATIENT
  Age: 89 Year
  Sex: Female

DRUGS (1)
  1. CIPRO [Suspect]
     Active Substance: CIPROFLOXACIN HYDROCHLORIDE
     Indication: HERPES ZOSTER
     Dosage: 750 MG, UNK
     Dates: start: 201001

REACTIONS (6)
  - Depressed mood [None]
  - Skin mass [None]
  - Rash [None]
  - Product use issue [None]
  - Visual acuity reduced [Recovering/Resolving]
  - Pyrexia [None]
